FAERS Safety Report 5456104-8 (Version None)
Quarter: 2007Q3

REPORT INFORMATION
  Report Type: 
  Country: None (occurrence: None)
  Receive Date: 20070918
  Receipt Date: 20070906
  Transmission Date: 20080115
  Serious: Yes (Death, Hospitalization)
  Sender: FDA-Public Use
  Company Number: IT-ROCHE-513362

PATIENT
  Age: 73 Year
  Sex: Female

DRUGS (5)
  1. TICLID [Suspect]
     Indication: ISCHAEMIC STROKE
     Route: 048
     Dates: start: 20070623, end: 20070727
  2. SUGUAN M [Concomitant]
     Route: 048
  3. NORVASC [Concomitant]
     Route: 048
  4. TRIATEC [Concomitant]
     Indication: ATRIAL FIBRILLATION
     Route: 048
  5. CARDURA [Concomitant]
     Indication: ATRIAL FIBRILLATION
     Route: 048

REACTIONS (2)
  - BONE MARROW FAILURE [None]
  - HEPATITIS CHOLESTATIC [None]
